FAERS Safety Report 5055417-1 (Version None)
Quarter: 2006Q3

REPORT INFORMATION
  Report Type: 
  Country: None (occurrence: None)
  Receive Date: 20060717
  Receipt Date: 20060717
  Transmission Date: 20061208
  Serious: Yes (Hospitalization)
  Sender: FDA-Public Use
  Company Number: None

PATIENT
  Age: 80 Year
  Sex: Male
  Weight: 70.9 kg

DRUGS (8)
  1. FONDAPARINUX [Suspect]
     Indication: ANTICOAGULANT THERAPY
     Dosage: 2.5MG  SQ DAILY
     Route: 058
     Dates: start: 20060404
  2. FONDAPARINUX [Suspect]
     Indication: ANTICOAGULANT THERAPY
     Dosage: 2.5MG  SQ DAILY
     Route: 058
     Dates: start: 20060405
  3. WARFARIN SODIUM [Suspect]
  4. CARTIA XT [Concomitant]
  5. FLOMAX [Concomitant]
  6. TOPROL-XL [Concomitant]
  7. TYLENOL (CAPLET) [Concomitant]
  8. ASPIRIN [Concomitant]

REACTIONS (3)
  - HAEMATOCRIT DECREASED [None]
  - HYPOTENSION [None]
  - POST PROCEDURAL COMPLICATION [None]
